FAERS Safety Report 23020480 (Version 1)
Quarter: 2023Q4

REPORT INFORMATION
  Report Type: Other
  Country: None (occurrence: A1)
  Receive Date: 20231003
  Receipt Date: 20231003
  Transmission Date: 20240110
  Serious: Yes (Hospitalization)
  Sender: FDA-Public Use
  Company Number: A1-Nephron Pharmaceuticals Corporation-2146625

PATIENT
  Sex: Female

DRUGS (4)
  1. BUDESONIDE [Suspect]
     Active Substance: BUDESONIDE
     Indication: Respiratory distress
     Route: 055
  2. DEXAMETHASONE [Concomitant]
     Active Substance: DEXAMETHASONE
     Route: 042
  3. EPINEPHRINE [Concomitant]
     Active Substance: EPINEPHRINE
     Route: 065
  4. RASBURICASE [Concomitant]
     Active Substance: RASBURICASE
     Route: 051

REACTIONS (1)
  - Drug ineffective [Not Recovered/Not Resolved]
